FAERS Safety Report 14774744 (Version 1)
Quarter: 2018Q2

REPORT INFORMATION
  Report Type: Spontaneous
  Country: US (occurrence: US)
  Receive Date: 20180418
  Receipt Date: 20180418
  Transmission Date: 20180711
  Serious: Yes (Life-Threatening)
  Sender: FDA-Public Use
  Company Number: US-ASTELLAS-2017US035151

PATIENT

DRUGS (1)
  1. LEXISCAN [Suspect]
     Active Substance: REGADENOSON
     Indication: CARDIAC STRESS TEST
     Dosage: 0.08 MG/ML, (ONE TIME)
     Route: 065
     Dates: start: 20170830, end: 20170830

REACTIONS (1)
  - Anal incontinence [Unknown]

NARRATIVE: CASE EVENT DATE: 20170830
